FAERS Safety Report 25885094 (Version 3)
Quarter: 2025Q4

REPORT INFORMATION
  Report Type: Report from Study
  Country: US (occurrence: US)
  Receive Date: 20251006
  Receipt Date: 20251028
  Transmission Date: 20260119
  Serious: Yes (Other)
  Sender: ACADIA PHARMACEUTICALS
  Company Number: US-ACADIA PHARMACEUTICALS INC.-ACA-2025-PIM-010939

PATIENT
  Age: 62 Year
  Sex: Female

DRUGS (12)
  1. NUPLAZID [Suspect]
     Active Substance: PIMAVANSERIN TARTRATE
     Indication: Parkinson^s disease
     Dosage: 10 MILLIGRAM, QD
     Route: 048
     Dates: start: 202011
  2. NUPLAZID [Suspect]
     Active Substance: PIMAVANSERIN TARTRATE
     Indication: Parkinson^s disease
     Dosage: 34 MILLIGRAM, QD
     Route: 048
     Dates: start: 202011
  3. SINEMET [Concomitant]
     Active Substance: CARBIDOPA\LEVODOPA
  4. CLONAZEPAM [Concomitant]
     Active Substance: CLONAZEPAM
  5. DROXIDOPA [Concomitant]
     Active Substance: DROXIDOPA
  6. LINZESS [Concomitant]
     Active Substance: LINACLOTIDE
  7. MIDODRINE [Concomitant]
     Active Substance: MIDODRINE
  8. QUETIAPINE [Concomitant]
     Active Substance: QUETIAPINE
  9. RIVASTIGMINE [Concomitant]
     Active Substance: RIVASTIGMINE
  10. TRINTELLIX [Concomitant]
     Active Substance: VORTIOXETINE HYDROBROMIDE
  11. ZINC [Concomitant]
     Active Substance: ZINC
  12. OMEPRAZOLE [Concomitant]
     Active Substance: OMEPRAZOLE

REACTIONS (2)
  - Hallucination [Recovering/Resolving]
  - Overdose [Unknown]

NARRATIVE: CASE EVENT DATE: 20250901
